FAERS Safety Report 16972081 (Version 1)
Quarter: 2019Q4

REPORT INFORMATION
  Report Type: Spontaneous
  Country: US (occurrence: US)
  Receive Date: 20191029
  Receipt Date: 20191029
  Transmission Date: 20200122
  Serious: Yes (Hospitalization)
  Sender: FDA-Public Use
  Company Number: US-AMNEAL PHARMACEUTICALS-2019-AMRX-02361

PATIENT
  Age: 45 Year
  Sex: Female
  Weight: 68 kg

DRUGS (7)
  1. ACTIVELLA [Suspect]
     Active Substance: ESTRADIOL\NORETHINDRONE ACETATE
     Dosage: 2 DOSAGE FORM, DAILY
     Route: 048
     Dates: start: 20170921
  2. IRON [Concomitant]
     Active Substance: IRON
     Indication: IRON DEFICIENCY ANAEMIA
     Dosage: 65 MILLIGRAM , 1 IN 1 D
     Route: 048
     Dates: start: 2016
  3. ACTIVELLA [Suspect]
     Active Substance: ESTRADIOL\NORETHINDRONE ACETATE
     Indication: UTERINE LEIOMYOMA
     Dosage: 2 DOSAGE FORM, DAILY
     Route: 048
     Dates: start: 20170606, end: 20170918
  4. ELAGOLIX [Suspect]
     Active Substance: ELAGOLIX
     Dosage: 2 DOSAGE FORM, DAILY
     Route: 048
     Dates: start: 20170921
  5. IBUPROFEN. [Concomitant]
     Active Substance: IBUPROFEN
     Indication: MIGRAINE
  6. ELAGOLIX [Suspect]
     Active Substance: ELAGOLIX
     Indication: UTERINE LEIOMYOMA
     Dosage: 2 DOSAGE FORM, DAILY
     Route: 048
     Dates: start: 20170606, end: 20170918
  7. IBUPROFEN. [Concomitant]
     Active Substance: IBUPROFEN
     Indication: DYSMENORRHOEA
     Dosage: 800 MILLIGRAM, AS NEEDED
     Route: 048
     Dates: start: 2007

REACTIONS (3)
  - Product use in unapproved indication [Unknown]
  - Hyperthyroidism [Recovered/Resolved]
  - Hypertension [Recovering/Resolving]

NARRATIVE: CASE EVENT DATE: 20170606
